FAERS Safety Report 4365956-4 (Version None)
Quarter: 2004Q2

REPORT INFORMATION
  Report Type: 
  Country: None (occurrence: None)
  Receive Date: 20040527
  Receipt Date: 20030728
  Transmission Date: 20050107
  Serious: Yes (Other)
  Sender: FDA-Public Use
  Company Number: US-GLAXOSMITHKLINE-A0418455A

PATIENT
  Age: 53 Year
  Sex: Male

DRUGS (5)
  1. LANOXIN [Suspect]
     Route: 042
     Dates: end: 20030726
  2. PREVACID [Concomitant]
  3. MONOPRIL [Concomitant]
  4. INSULIN [Concomitant]
  5. LOPRESSOR [Concomitant]

REACTIONS (1)
  - CARDIOACTIVE DRUG LEVEL INCREASED [None]
